FAERS Safety Report 12062221 (Version 1)
Quarter: 2016Q1

REPORT INFORMATION
  Report Type: Report from Study
  Country: PL (occurrence: PL)
  Receive Date: 20160210
  Receipt Date: 20160210
  Transmission Date: 20160526
  Serious: Yes (Other)
  Sender: FDA-Public Use
  Company Number: PL-BAYER-2016-021532

PATIENT
  Age: 37 Year
  Sex: Female

DRUGS (1)
  1. MIRENA [Suspect]
     Active Substance: LEVONORGESTREL
     Dosage: 20 MCG/24HR, CONT
     Route: 015
     Dates: start: 20160126, end: 20160126

REACTIONS (5)
  - Apnoea [None]
  - Stress [None]
  - Device difficult to use [None]
  - Complication of device insertion [None]
  - Seizure [None]

NARRATIVE: CASE EVENT DATE: 20160126
